FAERS Safety Report 13158430 (Version 3)
Quarter: 2017Q1

REPORT INFORMATION
  Report Type: Report from Study
  Country: IT (occurrence: IT)
  Receive Date: 20170127
  Receipt Date: 20170210
  Transmission Date: 20170428
  Serious: Yes (Death, Hospitalization, Other)
  Sender: FDA-Public Use
  Company Number: IT-TAIHO ONCOLOGY INC-JPTT170120

PATIENT
  Age: 71 Year
  Sex: Male
  Weight: 50 kg

DRUGS (3)
  1. KAYEXALATE [Concomitant]
     Active Substance: SODIUM POLYSTYRENE SULFONATE
     Indication: PROPHYLAXIS
     Dosage: 1 DF, UNK
     Route: 048
     Dates: start: 20000101, end: 20170102
  2. ANTRA [Concomitant]
     Active Substance: OMEPRAZOLE
     Indication: GASTRITIS PROPHYLAXIS
     Dosage: 40 MG, QD
     Route: 048
     Dates: start: 20000101, end: 20170102
  3. LONSURF [Suspect]
     Active Substance: TIPIRACIL HYDROCHLORIDE\TRIFLURIDINE
     Indication: ADENOCARCINOMA OF COLON
     Dosage: 55 MG BID (35 MG/M2 ON DAYS 1-5 AND 8-12 OF EACH 28-DAY CYCLE)
     Route: 048
     Dates: start: 20161208, end: 20161219

REACTIONS (4)
  - Acute kidney injury [Fatal]
  - Gastrointestinal haemorrhage [Fatal]
  - Hypotension [Recovered/Resolved]
  - Dyspnoea [Not Recovered/Not Resolved]

NARRATIVE: CASE EVENT DATE: 20170101
